FAERS Safety Report 7802525-5 (Version None)
Quarter: 2011Q4

REPORT INFORMATION
  Report Type: 
  Country: None (occurrence: None)
  Receive Date: 20111007
  Receipt Date: 20110929
  Transmission Date: 20120403
  Serious: Yes (Other)
  Sender: FDA-Public Use
  Company Number: US-BAYER-2011-094826

PATIENT

DRUGS (3)
  1. TYLENOL-500 [Concomitant]
     Dosage: 16 DF, UNK
  2. ALEVE (CAPLET) [Suspect]
     Indication: PRODUCT USED FOR UNKNOWN INDICATION
     Dosage: 12 DF, UNK
     Route: 048
  3. IBUPROFEN (ADVIL) [Concomitant]
     Dosage: 4 DF, UNK

REACTIONS (3)
  - THERMAL BURN [None]
  - LOSS OF CONSCIOUSNESS [None]
  - VOMITING [None]
